FAERS Safety Report 15479317 (Version 8)
Quarter: 2019Q1

REPORT INFORMATION
  Report Type: Spontaneous
  Country: US (occurrence: US)
  Receive Date: 20181009
  Receipt Date: 20190121
  Transmission Date: 20190417
  Serious: Yes (Other)
  Sender: FDA-Public Use
  Company Number: US-PFIZER INC-2018401405

PATIENT
  Age: 73 Year
  Sex: Male
  Weight: 86 kg

DRUGS (3)
  1. LEVOXYL [Suspect]
     Active Substance: LEVOTHYROXINE SODIUM
     Indication: HYPOTHYROIDISM
     Dosage: 112 UG, 1X/DAY (IN THE MORNING)
     Route: 048
  2. LOSARTAN POTASSIUM. [Concomitant]
     Active Substance: LOSARTAN POTASSIUM
     Indication: HYPERTENSION
     Dosage: 50 MG, 1X/DAY
     Route: 048
  3. LEVOXYL [Suspect]
     Active Substance: LEVOTHYROXINE SODIUM
     Indication: THYROID DISORDER

REACTIONS (10)
  - Rhinorrhoea [Recovered/Resolved]
  - Reaction to excipient [Unknown]
  - Dysgeusia [Recovered/Resolved]
  - Pharyngeal oedema [Recovered/Resolved]
  - Somnolence [Not Recovered/Not Resolved]
  - Drug ineffective [Unknown]
  - Drug hypersensitivity [Not Recovered/Not Resolved]
  - Speech disorder [Unknown]
  - Product taste abnormal [Unknown]
  - Fatigue [Not Recovered/Not Resolved]
